FAERS Safety Report 12289642 (Version 1)
Quarter: 2016Q2

REPORT INFORMATION
  Report Type: Spontaneous
  Country: US (occurrence: US)
  Receive Date: 20160421
  Receipt Date: 20160421
  Transmission Date: 20160815
  Serious: No
  Sender: FDA-Public Use
  Company Number: US-TEVA-564599USA

PATIENT
  Sex: Male

DRUGS (2)
  1. CEFALEXIN [Suspect]
     Active Substance: CEPHALEXIN
     Indication: INFECTION
     Route: 048
  2. SEPTRA [Suspect]
     Active Substance: SULFAMETHOXAZOLE\TRIMETHOPRIM
     Indication: INFECTION
     Route: 065

REACTIONS (5)
  - Abnormal behaviour [Unknown]
  - Wrong technique in product usage process [Unknown]
  - Crying [Unknown]
  - Psychomotor hyperactivity [Unknown]
  - Vomiting [Unknown]
